FAERS Safety Report 5823887-4 (Version None)
Quarter: 2008Q3

REPORT INFORMATION
  Report Type: 
  Country: None (occurrence: None)
  Receive Date: 20080724
  Receipt Date: 20080717
  Transmission Date: 20090109
  Serious: Yes (Other)
  Sender: FDA-Public Use
  Company Number: CHPA2008BUS12060

PATIENT
  Age: 95 Year
  Sex: Male
  Weight: 89.3 kg

DRUGS (1)
  1. BENEFIBER W/ WHEAT DEXTRIN (NCH) (WHEAT DEXTRIN) POWDER [Suspect]
     Indication: FAECES HARD
     Dosage: 2 TSP, BID, ORAL
     Route: 048
     Dates: end: 20080717

REACTIONS (2)
  - COLON CANCER [None]
  - KIDNEY INFECTION [None]
